FAERS Safety Report 8582804 (Version 4)
Quarter: 2013Q3

REPORT INFORMATION
  Report Type: Report from Study
  Country: US (occurrence: US)
  Receive Date: 20120529
  Receipt Date: 20130702
  Transmission Date: 20140515
  Serious: Yes (Hospitalization)
  Sender: FDA-Public Use
  Company Number: US-JNJFOC-20120514087

PATIENT
  Age: 17 Year
  Sex: Male
  Weight: 66.4 kg

DRUGS (3)
  1. REMICADE [Suspect]
     Indication: INFLAMMATORY BOWEL DISEASE
     Route: 042
     Dates: start: 20050908
  2. 5-ASA [Concomitant]
  3. PREVACID [Concomitant]

REACTIONS (1)
  - Cellulitis [Recovered/Resolved]
